FAERS Safety Report 19156106 (Version 2)
Quarter: 2023Q2

REPORT INFORMATION
  Report Type: Spontaneous
  Country: US (occurrence: US)
  Receive Date: 20210419
  Receipt Date: 20230517
  Transmission Date: 20230721
  Serious: No
  Sender: FDA-Public Use
  Company Number: US-SANOFI-00547471

PATIENT
  Age: 51 Year
  Sex: Male

DRUGS (2)
  1. LANTUS SOLOSTAR [Suspect]
     Active Substance: INSULIN GLARGINE
     Indication: Type 2 diabetes mellitus
     Dosage: UNK, BID (20 UNITS IN THE MORNING AND 10 UNITS AT NIGHT)
     Dates: start: 1998
  2. LANTUS SOLOSTAR [Suspect]
     Active Substance: INSULIN GLARGINE
     Dosage: 28 UNITS IN THE MORNING, AND 6 UNITS AT NIGHT
     Route: 065
     Dates: start: 2001

REACTIONS (2)
  - Eye operation [Unknown]
  - Inappropriate schedule of product administration [Unknown]

NARRATIVE: CASE EVENT DATE: 19980101
